FAERS Safety Report 7788987-0 (Version None)
Quarter: 2011Q3

REPORT INFORMATION
  Report Type: 
  Country: None (occurrence: None)
  Receive Date: 20110930
  Receipt Date: 20110927
  Transmission Date: 20111222
  Serious: Yes (Death, Other)
  Sender: FDA-Public Use
  Company Number: PHHY2011JP82611

PATIENT
  Age: 61 Year
  Sex: Male

DRUGS (4)
  1. GANCICLOVIR [Concomitant]
  2. CONTRAST MEDIA (X-RAY CONTRAST AGENTS) [Suspect]
  3. PREDNISOLONE [Concomitant]
     Indication: NEPHROTIC SYNDROME
     Dosage: 40 MG, UNK
     Route: 048
     Dates: start: 20110101
  4. CYCLOSPORINE [Suspect]
     Indication: NEPHROTIC SYNDROME
     Dosage: 100 MG, UNK
     Route: 048
     Dates: start: 20110101

REACTIONS (9)
  - SMALL INTESTINAL HAEMORRHAGE [None]
  - SHOCK HAEMORRHAGIC [None]
  - MELAENA [None]
  - HAEMOLYSIS [None]
  - NEPHROTIC SYNDROME [None]
  - RENAL IMPAIRMENT [None]
  - INTESTINAL ULCER [None]
  - ANURIA [None]
  - CYTOMEGALOVIRUS ENTERITIS [None]
